FAERS Safety Report 8490904-5 (Version None)
Quarter: 2012Q2

REPORT INFORMATION
  Report Type: 
  Country: None (occurrence: None)
  Receive Date: 20120629
  Receipt Date: 20120629
  Transmission Date: 20120825
  Serious: Yes (Other)
  Sender: FDA-Public Use
  Company Number: None

PATIENT
  Age: 52 Year
  Sex: Female
  Weight: 99.3377 kg

DRUGS (1)
  1. NIASPAN [Suspect]
     Indication: HYPERCHOLESTEROLAEMIA
     Dosage: 500 MG HS. INJ
     Dates: start: 20120628, end: 20120628

REACTIONS (5)
  - RED MAN SYNDROME [None]
  - FEELING HOT [None]
  - PRURITUS [None]
  - THERAPEUTIC RESPONSE DECREASED [None]
  - ERYTHEMA [None]
